FAERS Safety Report 23466114 (Version 2)
Quarter: 2024Q3

REPORT INFORMATION
  Report Type: Spontaneous
  Country: US (occurrence: US)
  Receive Date: 20240201
  Receipt Date: 20240802
  Transmission Date: 20241016
  Serious: No
  Sender: BRISTOL MYERS SQUIBB
  Company Number: US-BRISTOL-MYERS SQUIBB COMPANY-2024-016737

PATIENT
  Age: 42 Year
  Sex: Male
  Weight: 158.76 kg

DRUGS (1)
  1. POMALYST [Suspect]
     Active Substance: POMALIDOMIDE
     Indication: Plasma cell myeloma
     Route: 048
     Dates: start: 20240101

REACTIONS (9)
  - Tremor [Unknown]
  - Back pain [Unknown]
  - Brain fog [Unknown]
  - Confusional state [Unknown]
  - Chest pain [Unknown]
  - Fatigue [Unknown]
  - Irritability [Unknown]
  - Feeling of body temperature change [Unknown]
  - Product dose omission issue [Unknown]
